FAERS Safety Report 4725579-1 (Version None)
Quarter: 2005Q3

REPORT INFORMATION
  Report Type: 
  Country: None (occurrence: None)
  Receive Date: 20050722
  Receipt Date: 20050722
  Transmission Date: 20060218
  Serious: Yes (Other)
  Sender: FDA-Public Use
  Company Number: None

PATIENT
  Sex: Female
  Weight: 58.8 kg

DRUGS (9)
  1. HYDROXYUREA [Suspect]
     Dosage: 500 MG PO QD
     Route: 048
     Dates: start: 20050406
  2. GLEEVEC [Suspect]
     Dosage: 400 MG PO BID
     Route: 048
     Dates: start: 20050405
  3. DILANTIN [Concomitant]
  4. MULTI-VITAMINS [Concomitant]
  5. TEGRETOL [Concomitant]
  6. RESTORIL [Concomitant]
  7. VALIUM [Concomitant]
  8. CALCIUM GLUCONATE [Concomitant]
  9. VITAMIN B-12 [Concomitant]

REACTIONS (3)
  - ANAPLASTIC ASTROCYTOMA [None]
  - DRUG TOXICITY [None]
  - NEUTROPENIA [None]
